FAERS Safety Report 9507907 (Version 1)
Quarter: 2013Q3

REPORT INFORMATION
  Report Type: Spontaneous
  Country: US (occurrence: None)
  Receive Date: 20130906
  Receipt Date: 20130906
  Transmission Date: 20140515
  Serious: Yes (Hospitalization)
  Sender: FDA-Public Use
  Company Number: None

PATIENT
  Age: 55 Year
  Sex: Female
  Weight: 78 kg

DRUGS (1)
  1. PERTUZUMAB [Suspect]
     Indication: BREAST CANCER FEMALE
     Route: 042
     Dates: start: 20130903

REACTIONS (5)
  - Diarrhoea [None]
  - Chest discomfort [None]
  - Dyspnoea [None]
  - Asthenia [None]
  - Rash papular [None]
